FAERS Safety Report 9267269 (Version 1)
Quarter: 2013Q2

REPORT INFORMATION
  Report Type: Spontaneous
  Country: BR (occurrence: BR)
  Receive Date: 20130502
  Receipt Date: 20130502
  Transmission Date: 20140414
  Serious: Yes (Hospitalization)
  Sender: FDA-Public Use
  Company Number: PHHY2012BR096548

PATIENT
  Age: 59 Year
  Sex: Female

DRUGS (1)
  1. DIOVAN TRIPLE [Suspect]
     Indication: HYPERTENSION
     Dosage: 2 DF(160 MG VALS, 5 MG AMLO AND 12.5 MG HCTZ), A DAY
     Dates: start: 201108, end: 201209

REACTIONS (9)
  - Cerebrovascular accident [Recovered/Resolved]
  - Hypertension [Unknown]
  - Headache [Recovering/Resolving]
  - Muscular weakness [Not Recovered/Not Resolved]
  - Vomiting [Recovering/Resolving]
  - Blood potassium decreased [Recovered/Resolved]
  - Asthenia [Not Recovered/Not Resolved]
  - Malaise [Unknown]
  - Drug ineffective [Unknown]
